FAERS Safety Report 5947165-8 (Version None)
Quarter: 2008Q4

REPORT INFORMATION
  Report Type: 
  Country: None (occurrence: None)
  Receive Date: 20081106
  Receipt Date: 20081029
  Transmission Date: 20090506
  Serious: Yes (Death)
  Sender: FDA-Public Use
  Company Number: 2008AL011488

PATIENT
  Age: 64 Year
  Sex: Male

DRUGS (1)
  1. DIGOXIN [Suspect]
     Indication: HEART RATE IRREGULAR
     Dosage: 0.25 MG, DAILY, PO
     Route: 048
     Dates: start: 20000101

REACTIONS (3)
  - DIZZINESS [None]
  - MYOCARDIAL INFARCTION [None]
  - NAUSEA [None]
